FAERS Safety Report 10045844 (Version 2)
Quarter: 2014Q2

REPORT INFORMATION
  Report Type: Spontaneous
  Country: JP (occurrence: JP)
  Receive Date: 20140328
  Receipt Date: 20140428
  Transmission Date: 20141212
  Serious: Yes (Other)
  Sender: FDA-Public Use
  Company Number: JP-TAKEDA-2014TJP004304

PATIENT
  Age: 55 Year
  Sex: Female

DRUGS (14)
  1. ROZEREM TABLETS 8MG. [Suspect]
     Indication: INSOMNIA
     Dosage: 8 MG, QD
     Route: 048
     Dates: start: 20110111
  2. DEPAKENE-R [Concomitant]
     Dosage: 200 MG, BID
     Route: 048
  3. ROHYPNOL [Concomitant]
     Dosage: 1 MG, QD
     Route: 048
  4. NELBON [Concomitant]
     Dosage: 5 MG, QD
     Route: 048
  5. DORAL [Concomitant]
     Dosage: 15 MG, QD
     Route: 048
  6. LEXOTAN [Concomitant]
     Dosage: 10 MG, QD
     Route: 048
  7. LIPIDIL [Concomitant]
     Dosage: 200 MG, QD
     Route: 048
  8. DIOVAN [Concomitant]
     Dosage: 160 MG, QD
     Route: 048
  9. DIOVAN OD [Concomitant]
     Dosage: 160 MG, QD
     Route: 048
  10. MELBIN                             /00082702/ [Concomitant]
     Dosage: 250 MG, TID
     Route: 048
  11. METGLUCO [Concomitant]
     Dosage: 250 MG, TID
     Route: 048
  12. GASTER D [Concomitant]
     Dosage: 20 MG, QD
     Route: 048
  13. SENNOSIDE                          /00571902/ [Concomitant]
     Dosage: 48 MG, QD
     Route: 048
  14. DAIOU [Concomitant]
     Dosage: 0.5 G, QD
     Route: 048

REACTIONS (2)
  - Convulsion [Unknown]
  - Musculoskeletal stiffness [Unknown]
